FAERS Safety Report 12015335 (Version 1)
Quarter: 2016Q1

REPORT INFORMATION
  Report Type: Spontaneous
  Country: US (occurrence: US)
  Receive Date: 20160205
  Receipt Date: 20160205
  Transmission Date: 20160526
  Serious: No
  Sender: FDA-Public Use
  Company Number: US-AMGEN-USASP2015033413

PATIENT

DRUGS (4)
  1. FLUOROURACIL. [Concomitant]
     Active Substance: FLUOROURACIL
     Dosage: UNK
  2. OXALIPLATIN. [Concomitant]
     Active Substance: OXALIPLATIN
     Dosage: UNK
  3. NEULASTA [Suspect]
     Active Substance: PEGFILGRASTIM
     Indication: PRODUCT USED FOR UNKNOWN INDICATION
     Dosage: UNK
     Route: 065
  4. FOLINIC ACID [Concomitant]
     Active Substance: LEUCOVORIN
     Dosage: UNK

REACTIONS (26)
  - Oropharyngeal pain [Unknown]
  - Hiccups [Unknown]
  - Decreased appetite [Unknown]
  - Dysgeusia [Unknown]
  - Nausea [Unknown]
  - Dacryostenosis congenital [Unknown]
  - Pruritus [Unknown]
  - Pain in extremity [Unknown]
  - Neuropathy peripheral [Unknown]
  - Salivary hypersecretion [Unknown]
  - Dyspepsia [Unknown]
  - Lacrimation increased [Unknown]
  - Abdominal pain upper [Unknown]
  - Weight decreased [Unknown]
  - Anxiety [Unknown]
  - Hypoaesthesia [Unknown]
  - Lymphadenopathy [Unknown]
  - White blood cell count decreased [Unknown]
  - Paraesthesia [Unknown]
  - Skin burning sensation [Unknown]
  - Dizziness [Unknown]
  - Fatigue [Unknown]
  - Myalgia [Unknown]
  - Pain [Unknown]
  - Glossodynia [Unknown]
  - Eructation [Unknown]
